FAERS Safety Report 8034167-3 (Version None)
Quarter: 2012Q1

REPORT INFORMATION
  Report Type: 
  Country: None (occurrence: None)
  Receive Date: 20120110
  Receipt Date: 20120104
  Transmission Date: 20120608
  Serious: Yes (Hospitalization, Other)
  Sender: FDA-Public Use
  Company Number: US-ABBOTT-12P-163-0889158-00

PATIENT
  Sex: Male
  Weight: 99.88 kg

DRUGS (21)
  1. TRAMADOL HCL [Concomitant]
     Indication: PAIN
  2. LIPITOR [Concomitant]
     Indication: BLOOD TRIGLYCERIDES INCREASED
  3. LOTREL [Concomitant]
     Indication: BLOOD TRIGLYCERIDES INCREASED
  4. LORTAB [Concomitant]
     Indication: ANKYLOSING SPONDYLITIS
  5. SINGULAIR [Concomitant]
  6. ALLEGRA [Concomitant]
     Indication: MULTIPLE ALLERGIES
  7. ALLEGRA [Concomitant]
     Indication: ANKYLOSING SPONDYLITIS
  8. OMEPRAZOLE [Concomitant]
     Indication: GASTROOESOPHAGEAL REFLUX DISEASE
  9. ALLEGRA [Concomitant]
  10. HUMIRA [Suspect]
     Indication: ANKYLOSING SPONDYLITIS
     Dates: start: 20090101, end: 20101101
  11. LORTAB [Concomitant]
     Indication: PAIN
  12. TRICOR [Concomitant]
     Indication: BLOOD TRIGLYCERIDES INCREASED
  13. SINGULAIR [Concomitant]
     Indication: DYSPNOEA
  14. SINGULAIR [Concomitant]
  15. ALLEGRA [Concomitant]
  16. LIDODERM [Concomitant]
     Indication: ANKYLOSING SPONDYLITIS
     Dosage: PATCHES
     Route: 061
  17. LIDODERM [Concomitant]
     Indication: BACK PAIN
  18. METAXALONE [Concomitant]
     Indication: ANKYLOSING SPONDYLITIS
  19. TRAMADOL HCL [Concomitant]
     Indication: ANKYLOSING SPONDYLITIS
  20. SINGULAIR [Concomitant]
  21. METAXALONE [Concomitant]
     Indication: BACK PAIN

REACTIONS (8)
  - OEDEMA PERIPHERAL [None]
  - FEELING HOT [None]
  - PULMONARY EMBOLISM [None]
  - SKIN TIGHTNESS [None]
  - ROTATOR CUFF SYNDROME [None]
  - THROMBOSIS [None]
  - PAIN IN EXTREMITY [None]
  - DYSPNOEA [None]
